FAERS Safety Report 19502223 (Version 1)
Quarter: 2021Q3

REPORT INFORMATION
  Report Type: Spontaneous
  Country: US (occurrence: US)
  Receive Date: 20210706
  Receipt Date: 20210706
  Transmission Date: 20211014
  Serious: No
  Sender: FDA-Public Use
  Company Number: None

PATIENT
  Age: 35 Year
  Sex: Male

DRUGS (1)
  1. SOFOSB/VELPAT TAB [Suspect]
     Active Substance: SOFOSBUVIR\VELPATASVIR
     Dosage: 400/100 MG
     Route: 048
     Dates: start: 202104

REACTIONS (4)
  - Intervertebral disc protrusion [None]
  - Therapy interrupted [None]
  - Fatigue [None]
  - Libido decreased [None]

NARRATIVE: CASE EVENT DATE: 20210622
